FAERS Safety Report 8281262-X (Version None)
Quarter: 2012Q2

REPORT INFORMATION
  Report Type: 
  Country: None (occurrence: None)
  Receive Date: 20120413
  Receipt Date: 20120402
  Transmission Date: 20120825
  Serious: Yes (Hospitalization)
  Sender: FDA-Public Use
  Company Number: BR-AMGEN-BRASP2012021928

PATIENT
  Age: 60 Year
  Sex: Female
  Weight: 85.986 kg

DRUGS (5)
  1. OMEPRAZOLE [Concomitant]
     Dosage: UNK
  2. ENBREL [Suspect]
     Indication: RHEUMATOID ARTHRITIS
     Dosage: 25 MG, 2X/WEEK
     Route: 058
     Dates: start: 20111111, end: 20120201
  3. ARAVA [Concomitant]
     Dosage: UNK
  4. PREDNISONE TAB [Concomitant]
     Dosage: UNK
  5. ACETAMINOPHEN [Concomitant]
     Indication: PAIN
     Dosage: UNK

REACTIONS (2)
  - PAIN IN EXTREMITY [None]
  - SWELLING [None]
